FAERS Safety Report 14348157 (Version 1)
Quarter: 2018Q1

REPORT INFORMATION
  Report Type: Spontaneous
  Country: US (occurrence: US)
  Receive Date: 20180103
  Receipt Date: 20180103
  Transmission Date: 20180509
  Serious: No
  Sender: FDA-Public Use
  Company Number: US-BAUSCH-BL-2017-028430

PATIENT
  Age: 10 Year
  Sex: Female
  Weight: 89.89 kg

DRUGS (1)
  1. XENAZINE [Suspect]
     Active Substance: TETRABENAZINE
     Indication: TOURETTE^S DISORDER
     Dosage: 1+1/2 TABLETS IN THE MORNING, 1+1/2 TABLETS AT NOON, AND 2 TABLETS AT BEDTIME.
     Route: 048
     Dates: start: 201606

REACTIONS (5)
  - Headache [Unknown]
  - Off label use [Not Recovered/Not Resolved]
  - Abdominal pain [Unknown]
  - Menstruation irregular [Unknown]
  - Somnolence [Unknown]

NARRATIVE: CASE EVENT DATE: 201606
